FAERS Safety Report 6248578-X (Version None)
Quarter: 2009Q2

REPORT INFORMATION
  Report Type: 
  Country: None (occurrence: None)
  Receive Date: 20090624
  Receipt Date: 20090624
  Transmission Date: 20091009
  Serious: No
  Sender: FDA-Public Use
  Company Number: None

PATIENT
  Age: 36 Year
  Sex: Male
  Weight: 151 kg

DRUGS (8)
  1. HEPARIN [Suspect]
     Indication: PROPHYLAXIS
     Dosage: 5000 UNITS SQ TID
     Route: 058
     Dates: start: 20090412, end: 20090421
  2. FENTANYL [Concomitant]
  3. INSULIN [Concomitant]
  4. MMW [Concomitant]
  5. METHYLPREDNISOLONE [Concomitant]
  6. NYSTATIN [Concomitant]
  7. RANITIDINE [Concomitant]
  8. BACTRIM [Concomitant]

REACTIONS (1)
  - HEPARIN-INDUCED THROMBOCYTOPENIA [None]
